FAERS Safety Report 20814113 (Version 1)
Quarter: 2022Q2

REPORT INFORMATION
  Report Type: Spontaneous
  Country: US (occurrence: None)
  Receive Date: 20220510
  Receipt Date: 20220510
  Transmission Date: 20220721
  Serious: Yes (Hospitalization)
  Sender: FDA-Public Use
  Company Number: None

PATIENT
  Age: 69 Year
  Sex: Male
  Weight: 77.26 kg

DRUGS (1)
  1. TECARTUS [Suspect]
     Active Substance: BREXUCABTAGENE AUTOLEUCEL
     Indication: Mantle cell lymphoma
     Route: 042
     Dates: start: 20220425, end: 20220425

REACTIONS (10)
  - Cytokine release syndrome [None]
  - Neurotoxicity [None]
  - Chills [None]
  - Tachycardia [None]
  - Aphasia [None]
  - Mental status changes [None]
  - Facial paralysis [None]
  - Depressed level of consciousness [None]
  - Blood pressure decreased [None]
  - Oxygen saturation decreased [None]

NARRATIVE: CASE EVENT DATE: 20220501
